FAERS Safety Report 5703834-6 (Version None)
Quarter: 2008Q2

REPORT INFORMATION
  Report Type: 
  Country: None (occurrence: None)
  Receive Date: 20080414
  Receipt Date: 20080401
  Transmission Date: 20081010
  Serious: Yes (Other)
  Sender: FDA-Public Use
  Company Number: US-BAYER-200811523NA

PATIENT
  Age: 76 Year
  Sex: Male
  Weight: 68 kg

DRUGS (15)
  1. BETASERON [Suspect]
     Indication: MULTIPLE SCLEROSIS
     Route: 058
     Dates: start: 20070804, end: 20070816
  2. BETASERON [Suspect]
     Dosage: TOTAL DAILY DOSE: 4 MIU
     Route: 058
     Dates: start: 20070101
  3. BETASERON [Suspect]
     Dosage: TOTAL DAILY DOSE: 6 MIU
     Route: 058
     Dates: start: 20070101, end: 20071018
  4. BETASERON [Suspect]
     Dosage: TOTAL DAILY DOSE: 2 MIU
     Route: 058
     Dates: start: 20080102
  5. BETASERON [Suspect]
     Dosage: TOTAL DAILY DOSE: 2 MIU
     Route: 058
     Dates: start: 20071231
  6. ETODOLAC [Concomitant]
  7. AMLODIPINE BESYLATE AND BENAZEPRIL HCL [Concomitant]
  8. BACLOFEN [Concomitant]
  9. AMANTADINE HCL [Concomitant]
  10. METHOTREXATE [Concomitant]
  11. TRIAMTERENE AND HYDROCHLOROTHIAZIDE [Concomitant]
  12. FOLIC ACID [Concomitant]
  13. SULFAMETH-EMP [Concomitant]
  14. TYLENOL (CAPLET) [Concomitant]
     Dosage: TOTAL DAILY DOSE: 500 MG
  15. ASPIRIN [Concomitant]
     Dosage: TOTAL DAILY DOSE: 81 MG

REACTIONS (2)
  - CONSTIPATION [None]
  - INGUINAL HERNIA [None]
